FAERS Safety Report 14894842 (Version 1)
Quarter: 2018Q2

REPORT INFORMATION
  Report Type: Spontaneous
  Country: US (occurrence: US)
  Receive Date: 20180515
  Receipt Date: 20180515
  Transmission Date: 20180711
  Serious: Yes (Other)
  Sender: FDA-Public Use
  Company Number: US-AMGEN-USASP2018063543

PATIENT

DRUGS (4)
  1. EPOGEN [Suspect]
     Active Substance: ERYTHROPOIETIN
     Dosage: UNK
     Route: 065
  2. EPOGEN [Suspect]
     Active Substance: ERYTHROPOIETIN
     Dosage: 75,000 IU, QWK
     Route: 065
  3. EPOGEN [Suspect]
     Active Substance: ERYTHROPOIETIN
     Indication: PRODUCT USED FOR UNKNOWN INDICATION
     Dosage: UNK
     Route: 065
  4. EPOGEN [Suspect]
     Active Substance: ERYTHROPOIETIN
     Dosage: 100,000 IU, QWK
     Route: 065

REACTIONS (2)
  - Haemoglobin decreased [Unknown]
  - Haemodialysis [Unknown]

NARRATIVE: CASE EVENT DATE: 2018
